FAERS Safety Report 7501801-3 (Version None)
Quarter: 2011Q2

REPORT INFORMATION
  Report Type: 
  Country: None (occurrence: None)
  Receive Date: 20110523
  Receipt Date: 20110523
  Transmission Date: 20111010
  Serious: Yes (Death)
  Sender: FDA-Public Use
  Company Number: None

PATIENT
  Age: 22 Year
  Sex: Male
  Weight: 105 kg

DRUGS (1)
  1. PEGINTERFERON ALFA-2A [Suspect]
     Indication: HEPATITIS B
     Dosage: 180MCG ONCE WEEKLY SQ
     Route: 058
     Dates: start: 20110513, end: 20110513

REACTIONS (3)
  - NAUSEA [None]
  - PAIN [None]
  - VOMITING [None]
